FAERS Safety Report 22835865 (Version 5)
Quarter: 2023Q4

REPORT INFORMATION
  Report Type: Spontaneous
  Country: US (occurrence: US)
  Receive Date: 20230818
  Receipt Date: 20231213
  Transmission Date: 20240110
  Serious: No
  Sender: FDA-Public Use
  Company Number: US-BIOGEN-2023BI01200895

PATIENT
  Sex: Female

DRUGS (1)
  1. TYSABRI [Suspect]
     Active Substance: NATALIZUMAB
     Indication: Multiple sclerosis
     Dosage: LATEST LAST INFUSION ON 07-JUN-2023, INFUSED OVER 1 HOUR
     Route: 050
     Dates: start: 20221024

REACTIONS (2)
  - Inappropriate schedule of product administration [Unknown]
  - Multiple sclerosis relapse [Not Recovered/Not Resolved]
